FAERS Safety Report 21619767 (Version 2)
Quarter: 2022Q4

REPORT INFORMATION
  Report Type: Other
  Country: CN (occurrence: None)
  Receive Date: 20221121
  Receipt Date: 20221209
  Transmission Date: 20230113
  Serious: Yes (Other)
  Sender: FDA-Public Use
  Company Number: CN-ROCHE-3221049

PATIENT
  Age: 68 Year
  Sex: Male

DRUGS (2)
  1. CAPECITABINE [Suspect]
     Active Substance: CAPECITABINE
     Indication: Rectal adenocarcinoma
     Dosage: TAKEN ORALLY ON DAY 1-14
     Route: 048
  2. OXALIPLATIN [Suspect]
     Active Substance: OXALIPLATIN
     Indication: Rectal adenocarcinoma
     Dosage: ON DAY 1 EVERY 3 WEEKS
     Route: 042

REACTIONS (2)
  - Enterocolitis [Recovering/Resolving]
  - Large intestinal ulcer [Recovering/Resolving]
